FAERS Safety Report 5982931-4 (Version None)
Quarter: 2008Q4

REPORT INFORMATION
  Report Type: 
  Country: None (occurrence: None)
  Receive Date: 20081125
  Receipt Date: 20071114
  Transmission Date: 20090506
  Serious: Yes (Hospitalization)
  Sender: FDA-Public Use
  Company Number: 2007MP000635

PATIENT
  Age: 53 Year
  Sex: Male

DRUGS (3)
  1. GLIADEL [Suspect]
     Indication: GLIOBLASTOMA MULTIFORME
     Dosage: X1;ICER
     Dates: start: 20071108
  2. DECADRON [Concomitant]
  3. DILANTIN [Concomitant]

REACTIONS (1)
  - APHASIA [None]
